FAERS Safety Report 14964691 (Version 1)
Quarter: 2018Q2

REPORT INFORMATION
  Report Type: Spontaneous
  Country: US (occurrence: US)
  Receive Date: 20180510
  Receipt Date: 20180510
  Transmission Date: 20180711
  Serious: Yes (Hospitalization)
  Sender: FDA-Public Use
  Company Number: None

PATIENT
  Age: 55 Year
  Sex: Male

DRUGS (6)
  1. LANSOPRAZOLE. [Concomitant]
     Active Substance: LANSOPRAZOLE
  2. LISINOPRIL. [Concomitant]
     Active Substance: LISINOPRIL
  3. METFORMIN [Concomitant]
     Active Substance: METFORMIN HYDROCHLORIDE
  4. CALCIUM D [Concomitant]
     Active Substance: CALCIUM\VITAMIN D
  5. XOLAIR [Suspect]
     Active Substance: OMALIZUMAB
     Indication: RHINITIS ALLERGIC
     Dosage: ?          OTHER FREQUENCY:Q2W;?
     Route: 058
     Dates: start: 20180110
  6. FISH OIL [Concomitant]
     Active Substance: FISH OIL

REACTIONS (1)
  - Drug dose omission [None]

NARRATIVE: CASE EVENT DATE: 20180509
